FAERS Safety Report 4971159-2 (Version None)
Quarter: 2006Q1

REPORT INFORMATION
  Report Type: 
  Country: None (occurrence: None)
  Receive Date: 20060222
  Receipt Date: 20050712
  Transmission Date: 20060701
  Serious: Yes (Hospitalization, Other)
  Sender: FDA-Public Use
  Company Number: HQWYE186813JUL05

PATIENT
  Sex: Female

DRUGS (1)
  1. PROTONIX [Suspect]
     Dates: start: 20050617, end: 20050620

REACTIONS (4)
  - DRUG HYPERSENSITIVITY [None]
  - HEADACHE [None]
  - NAUSEA [None]
  - VOMITING [None]
